FAERS Safety Report 15221564 (Version 2)
Quarter: 2018Q4

REPORT INFORMATION
  Report Type: Spontaneous
  Country: FR (occurrence: FR)
  Receive Date: 20180731
  Receipt Date: 20180801
  Transmission Date: 20190204
  Serious: Yes (Hospitalization)
  Sender: FDA-Public Use
  Company Number: FR-PFIZER INC-2018300753

PATIENT
  Age: 87 Year
  Sex: Female
  Weight: 89 kg

DRUGS (10)
  1. LAROXYL [Suspect]
     Active Substance: AMITRIPTYLINE HYDROCHLORIDE
     Dosage: 25 GTT, 1X/DAY
     Route: 048
     Dates: end: 20180610
  2. BISOCE [Concomitant]
     Active Substance: BISOPROLOL
  3. KARDEGIC [Concomitant]
     Active Substance: ASPIRIN DL-LYSINE
     Route: 048
  4. LYRICA [Suspect]
     Active Substance: PREGABALIN
     Dosage: 4 DF, 1X/DAY
     Route: 048
  5. ISOCARDIDE [Suspect]
     Active Substance: ISOSORBIDE DINITRATE
     Indication: ANGINA PECTORIS
     Dosage: 1 DF, 1X/DAY
     Route: 060
     Dates: end: 20180610
  6. MACROGOL 4000 [Suspect]
     Active Substance: POLYETHYLENE GLYCOL 4000
     Indication: CONSTIPATION
     Route: 048
     Dates: end: 20180610
  7. VERSATIS [Concomitant]
     Active Substance: LIDOCAINE
  8. LASILIX /00032601/ [Concomitant]
     Active Substance: FUROSEMIDE
  9. DISCOTRINE [Suspect]
     Active Substance: NITROGLYCERIN
     Indication: ANGINA PECTORIS
     Dosage: 1 DF, 1X/DAY
     Route: 062
     Dates: end: 20180610
  10. EFFERALGAN [Concomitant]
     Active Substance: ACETAMINOPHEN

REACTIONS (3)
  - Confusional state [Recovered/Resolved]
  - Respiratory distress [Recovered/Resolved]
  - Urinary retention [Recovered/Resolved]

NARRATIVE: CASE EVENT DATE: 20180610
